FAERS Safety Report 9708585 (Version 1)
Quarter: 2013Q4

REPORT INFORMATION
  Report Type: Report from Study
  Country: MX (occurrence: MX)
  Receive Date: 20131125
  Receipt Date: 20131125
  Transmission Date: 20140711
  Serious: Yes (Other)
  Sender: FDA-Public Use
  Company Number: PHHY2013MX134734

PATIENT
  Age: 64 Year
  Sex: Male

DRUGS (2)
  1. CO-DIOVAN [Suspect]
     Indication: HYPERTENSION
     Dosage: 1 DF (160 MG VALS, 12.5 MG HYDR), DAILY
     Route: 048
     Dates: end: 201310
  2. CO-DIOVAN [Suspect]
     Dosage: 1 DF (320 MG VALS, 25 MG HYDR), DAILY
     Route: 048
     Dates: start: 201310

REACTIONS (2)
  - Diabetes mellitus [Not Recovered/Not Resolved]
  - Hypertension [Not Recovered/Not Resolved]
